FAERS Safety Report 10207040 (Version 1)
Quarter: 2014Q2

REPORT INFORMATION
  Report Type: Spontaneous
  Country: US (occurrence: US)
  Receive Date: 20140530
  Receipt Date: 20140530
  Transmission Date: 20141212
  Serious: Yes (Hospitalization)
  Sender: FDA-Public Use
  Company Number: US-PFIZER INC-2013238432

PATIENT
  Age: 6 Year
  Sex: Male
  Weight: 37.2 kg

DRUGS (2)
  1. MOTRIN IB [Suspect]
     Indication: HEADACHE
     Dosage: TWO AND A HALF TSP EVERY SIX HOURS
     Route: 048
     Dates: start: 20130723, end: 20130724
  2. ACETAMINOPHEN [Suspect]
     Dosage: UNK
     Route: 065

REACTIONS (1)
  - Rash [Recovering/Resolving]
